FAERS Safety Report 16548705 (Version 2)
Quarter: 2019Q3

REPORT INFORMATION
  Report Type: Spontaneous
  Country: TR (occurrence: TR)
  Receive Date: 20190709
  Receipt Date: 20190716
  Transmission Date: 20191004
  Serious: Yes (Hospitalization)
  Sender: FDA-Public Use
  Company Number: TR-BEH-2019103960

PATIENT
  Age: 20 Year
  Sex: Female
  Weight: 60 kg

DRUGS (4)
  1. PRIVIGEN [Suspect]
     Active Substance: HUMAN IMMUNOGLOBULIN G
     Dosage: 30 GRAM, QD
     Route: 042
     Dates: start: 20190627, end: 20190627
  2. FERRO SANOL [Concomitant]
     Active Substance: FERROUS GLYCINE SULFATE
     Dosage: UNK
     Route: 048
     Dates: start: 20190627
  3. PREDNOL [METHYLPREDNISOLONE] [Concomitant]
     Dosage: 80 MILLIGRAM
     Route: 048
     Dates: start: 20190627
  4. PANTO [PANTHENOL] [Concomitant]
     Dosage: 40 MILLIGRAM
     Route: 048
     Dates: start: 20190627

REACTIONS (1)
  - Arrhythmia [Recovered/Resolved]

NARRATIVE: CASE EVENT DATE: 20190627
